FAERS Safety Report 9547757 (Version 1)
Quarter: 2013Q2

REPORT INFORMATION
  Report Type: Spontaneous
  Country: US (occurrence: None)
  Receive Date: 20130606
  Receipt Date: 20130606
  Transmission Date: 20140414
  Serious: Yes (Other)
  Sender: FDA-Public Use
  Company Number: 1303USA000697

PATIENT
  Sex: Female

DRUGS (2)
  1. ZIOPTAN [Suspect]
     Indication: GLAUCOMA
     Dosage: 0.0015% 1 DROP EACH EYE/ ONCE DAILY IN THE EVENING, OPHTHALMIC
     Dates: start: 201206
  2. MINOCYCLINE (MINOCYCLINE) [Concomitant]

REACTIONS (4)
  - Dry eye [None]
  - Ocular hyperaemia [None]
  - Eye irritation [None]
  - Retinal haemorrhage [None]
